FAERS Safety Report 16828098 (Version 1)
Quarter: 2019Q3

REPORT INFORMATION
  Report Type: Spontaneous
  Country: US (occurrence: US)
  Receive Date: 20190729
  Receipt Date: 20190729
  Transmission Date: 20191005
  Serious: No
  Sender: FDA-Public Use
  Company Number: None

PATIENT
  Age: 37 Year
  Sex: Female

DRUGS (1)
  1. MAKENA [Suspect]
     Active Substance: HYDROXYPROGESTERONE CAPROATE
     Dosage: ?          OTHER DOSE:275MG/1.1ML ;?
     Dates: start: 20190507

REACTIONS (5)
  - Maternal exposure during pregnancy [None]
  - Maternal drugs affecting foetus [None]
  - Premature baby [None]
  - Premature delivery [None]
  - Foetal exposure during pregnancy [None]
